FAERS Safety Report 19222499 (Version 1)
Quarter: 2021Q2

REPORT INFORMATION
  Report Type: Spontaneous
  Country: US (occurrence: US)
  Receive Date: 20210506
  Receipt Date: 20210506
  Transmission Date: 20210717
  Serious: No
  Sender: FDA-Public Use
  Company Number: None

PATIENT
  Age: 28 Year
  Sex: Female
  Weight: 56.25 kg

DRUGS (4)
  1. DIFFERIN [Suspect]
     Active Substance: ADAPALENE
     Indication: ACNE
     Dosage: ?          QUANTITY:1 1 APPLICATION;?
     Route: 061
     Dates: start: 20210425, end: 20210504
  2. VITAMIN D [Concomitant]
     Active Substance: VITAMIN D NOS
  3. VITAMIN C [Concomitant]
     Active Substance: ASCORBIC ACID
  4. COMBINATION BIRTH CONTROL PILL [Concomitant]

REACTIONS (7)
  - Eyelid exfoliation [None]
  - Rash [None]
  - Burning sensation [None]
  - Application site rash [None]
  - Pruritus [None]
  - Erythema [None]
  - Swelling of eyelid [None]

NARRATIVE: CASE EVENT DATE: 20210505
